FAERS Safety Report 23685398 (Version 1)
Quarter: 2024Q1

REPORT INFORMATION
  Report Type: Spontaneous
  Country: GB (occurrence: GB)
  Receive Date: 20240329
  Receipt Date: 20240329
  Transmission Date: 20240410
  Serious: Yes (Disabling)
  Sender: FDA-Public Use
  Company Number: None

PATIENT

DRUGS (9)
  1. TRELEGY ELLIPTA [Suspect]
     Active Substance: FLUTICASONE FUROATE\UMECLIDINIUM BROMIDE\VILANTEROL TRIFENATATE
     Indication: Product used for unknown indication
     Dosage: 1 DF, QD (92MICROGRAMS/DOSE / 55MICROGRAMS/DOSE / 22MICROGRAMS/DOSE)
     Route: 055
     Dates: start: 20240221
  2. ETANERCEPT [Concomitant]
     Active Substance: ETANERCEPT
     Indication: Product used for unknown indication
     Dosage: HOSPITAL ONLY MEDICATION. DO NOT PRESCRIBE
     Route: 065
     Dates: start: 20190426
  3. CYCLOSPORINE [Concomitant]
     Active Substance: CYCLOSPORINE
     Indication: Product used for unknown indication
     Dosage: 1 G, QD (ONE DROP BOTH EYES AT NIGHT)
     Route: 065
     Dates: start: 20230821
  4. FEXOFENADINE [Concomitant]
     Active Substance: FEXOFENADINE HYDROCHLORIDE
     Indication: Product used for unknown indication
     Dosage: 1 DF, QD
     Route: 065
     Dates: start: 20230821
  5. OMEPRAZOLE [Concomitant]
     Active Substance: OMEPRAZOLE
     Indication: Product used for unknown indication
     Dosage: 1 DF, QD (ON EMPTY STOMACH)
     Route: 065
     Dates: start: 20240221, end: 20240322
  6. ALBUTEROL [Concomitant]
     Active Substance: ALBUTEROL
     Indication: Product used for unknown indication
     Dosage: TO USE WHEN REQUIRED AS DIRECTED BY RESPIRATORY...
     Route: 065
     Dates: start: 20230821
  7. SERETIDE [Concomitant]
     Active Substance: FLUTICASONE PROPIONATE\SALMETEROL XINAFOATE
     Indication: Product used for unknown indication
     Dosage: 2 DF, BID
     Route: 055
     Dates: start: 20230821
  8. THEOPHYLLINE ANHYDROUS [Concomitant]
     Active Substance: THEOPHYLLINE ANHYDROUS
     Indication: Product used for unknown indication
     Dosage: 1 DF, BID
     Route: 065
     Dates: start: 20230821
  9. VENTOLIN [Concomitant]
     Active Substance: ALBUTEROL SULFATE
     Indication: Product used for unknown indication
     Dosage: 2 DF (SPRAYS)
     Route: 065
     Dates: start: 20230821

REACTIONS (4)
  - Dyspnoea [Recovered/Resolved]
  - Dry throat [Unknown]
  - Throat tightness [Unknown]
  - Cough [Unknown]

NARRATIVE: CASE EVENT DATE: 20240222
